FAERS Safety Report 15473712 (Version 2)
Quarter: 2018Q4

REPORT INFORMATION
  Report Type: Spontaneous
  Country: US (occurrence: US)
  Receive Date: 20181008
  Receipt Date: 20181112
  Transmission Date: 20190205
  Serious: No
  Sender: FDA-Public Use
  Company Number: US-GLAXOSMITHKLINE-US2018176858

PATIENT
  Sex: Male

DRUGS (2)
  1. EQUATE NICOTINE [Suspect]
     Active Substance: NICOTINE
     Indication: SMOKING CESSATION THERAPY
     Dosage: 21 MG, UNK
     Dates: start: 20180914, end: 20180920
  2. EQUATE NICOTINE [Suspect]
     Active Substance: NICOTINE
     Dosage: UNK

REACTIONS (3)
  - Product complaint [Unknown]
  - Rash erythematous [Unknown]
  - Product adhesion issue [Unknown]

NARRATIVE: CASE EVENT DATE: 20180926
